FAERS Safety Report 11792664 (Version 1)
Quarter: 2015Q4

REPORT INFORMATION
  Report Type: Spontaneous
  Country: US (occurrence: None)
  Receive Date: 20151130
  Receipt Date: 20151130
  Transmission Date: 20160305
  Serious: No
  Sender: FDA-Public Use
  Company Number: None

PATIENT
  Age: 76 Year
  Sex: Male

DRUGS (1)
  1. NEXAVAR [Suspect]
     Active Substance: SORAFENIB
     Indication: HEPATIC CANCER
     Route: 048
     Dates: start: 20150311, end: 201510

REACTIONS (3)
  - Abasia [None]
  - Palmar-plantar erythrodysaesthesia syndrome [None]
  - Pain [None]

NARRATIVE: CASE EVENT DATE: 20150401
